FAERS Safety Report 19372613 (Version 2)
Quarter: 2021Q3

REPORT INFORMATION
  Report Type: Spontaneous
  Country: GB (occurrence: GB)
  Receive Date: 20210604
  Receipt Date: 20210913
  Transmission Date: 20211014
  Serious: Yes (Death, Other)
  Sender: FDA-Public Use
  Company Number: GB-AMGEN-GBRSP2021084642

PATIENT

DRUGS (2)
  1. BORTEZOMIB. [Concomitant]
     Active Substance: BORTEZOMIB
     Indication: PLASMA CELL MYELOMA
     Dosage: UNK
  2. CARFILZOMIB [Suspect]
     Active Substance: CARFILZOMIB
     Indication: PLASMA CELL MYELOMA
     Dosage: UNK
     Route: 065

REACTIONS (7)
  - Thrombocytopenia [Fatal]
  - Plasma cell myeloma [Unknown]
  - Sepsis [Fatal]
  - COVID-19 pneumonia [Fatal]
  - Death [Fatal]
  - Plasma cell myeloma refractory [Fatal]
  - Haemorrhage [Fatal]
